FAERS Safety Report 16211481 (Version 1)
Quarter: 2019Q2

REPORT INFORMATION
  Report Type: Spontaneous
  Country: US (occurrence: US)
  Receive Date: 20190418
  Receipt Date: 20190418
  Transmission Date: 20190711
  Serious: Yes (Hospitalization)
  Sender: FDA-Public Use
  Company Number: US-AMICUS THERAPEUTICS, INC.-AMI_424

PATIENT
  Age: 63 Year
  Sex: Male
  Weight: 108.84 kg

DRUGS (8)
  1. SODIUM CHLORIDE. [Concomitant]
     Active Substance: SODIUM CHLORIDE
     Indication: PRODUCT USED FOR UNKNOWN INDICATION
     Dosage: UNK
  2. ZOCOR [Concomitant]
     Active Substance: SIMVASTATIN
     Indication: PRODUCT USED FOR UNKNOWN INDICATION
     Dosage: UNK
  3. CARBAMAZEPINE. [Concomitant]
     Active Substance: CARBAMAZEPINE
     Indication: PRODUCT USED FOR UNKNOWN INDICATION
     Dosage: UNK
  4. GALAFOLD [Suspect]
     Active Substance: MIGALASTAT HYDROCHLORIDE
     Indication: FABRY^S DISEASE
     Dosage: 123 MILLIGRAM, QOD
     Route: 048
     Dates: start: 20181101
  5. ASPIRIN                            /00002701/ [Concomitant]
     Active Substance: ASPIRIN
     Indication: PRODUCT USED FOR UNKNOWN INDICATION
     Dosage: UNK
  6. CLOTRIMAZOLE 3 [Concomitant]
     Indication: PRODUCT USED FOR UNKNOWN INDICATION
     Dosage: UNK
  7. DHA NATAL [Concomitant]
     Indication: PRODUCT USED FOR UNKNOWN INDICATION
     Dosage: UNK
  8. CEREZYME [Concomitant]
     Active Substance: IMIGLUCERASE
     Indication: PRODUCT USED FOR UNKNOWN INDICATION

REACTIONS (2)
  - Nephrolithiasis [Unknown]
  - Product dose omission [Unknown]

NARRATIVE: CASE EVENT DATE: 20190319
